FAERS Safety Report 23519188 (Version 1)
Quarter: 2024Q1

REPORT INFORMATION
  Report Type: Report from Study
  Country: NL (occurrence: NL)
  Receive Date: 20240213
  Receipt Date: 20240213
  Transmission Date: 20240410
  Serious: Yes (Death, Other)
  Sender: FDA-Public Use
  Company Number: NL-VER-202400015

PATIENT
  Sex: Male

DRUGS (3)
  1. TRIPTORELIN PAMOATE [Suspect]
     Active Substance: TRIPTORELIN PAMOATE
     Indication: Prostate cancer
     Dosage: 1.00 1.0 X PER 6 MONTHS, 22.5MG SOLV
     Route: 030
     Dates: start: 20220826, end: 20220826
  2. TRIPTORELIN PAMOATE [Suspect]
     Active Substance: TRIPTORELIN PAMOATE
     Indication: Prostate cancer
     Dosage: 1.00 1.0 X PER 6 MONTHS, 22.5MG SOLV 2ML
     Route: 030
     Dates: start: 20220830, end: 20220830
  3. TRIPTORELIN PAMOATE [Suspect]
     Active Substance: TRIPTORELIN PAMOATE
     Indication: Prostate cancer
     Dosage: 1.00 1.0 X PER 6 MONTHS, 22.5MG SOLV 2ML
     Route: 030
     Dates: start: 20230227, end: 20230227

REACTIONS (1)
  - Death [Fatal]
